FAERS Safety Report 23669584 (Version 1)
Quarter: 2024Q1

REPORT INFORMATION
  Report Type: Spontaneous
  Country: US (occurrence: None)
  Receive Date: 20240324
  Receipt Date: 20240324
  Transmission Date: 20240410
  Serious: Yes (Other)
  Sender: FDA-Public Use
  Company Number: None

PATIENT
  Age: 61 Year
  Sex: Female
  Weight: 82.35 kg

DRUGS (9)
  1. OZEMPIC [Suspect]
     Active Substance: SEMAGLUTIDE
     Indication: Diabetes mellitus
     Dosage: OTHER QUANTITY : 1.0 INJECTION(S);?OTHER FREQUENCY : ONCE A WEEK;?
     Route: 058
  2. METFORMIN [Concomitant]
     Active Substance: METFORMIN HYDROCHLORIDE
  3. GLIPIZIDE [Concomitant]
     Active Substance: GLIPIZIDE
  4. TRAMADOL [Concomitant]
     Active Substance: TRAMADOL\TRAMADOL HYDROCHLORIDE
  5. OZEMPIC [Concomitant]
     Active Substance: SEMAGLUTIDE
  6. AMLODIPINE [Concomitant]
     Active Substance: AMLODIPINE BESYLATE
  7. SYNTHROID [Concomitant]
     Active Substance: LEVOTHYROXINE SODIUM
  8. diclophenic [Concomitant]
  9. Advil/acetaminophen combo [Concomitant]

REACTIONS (7)
  - Weight decreased [None]
  - Asthenia [None]
  - Fatigue [None]
  - Pain in extremity [None]
  - Neck pain [None]
  - Spinal pain [None]
  - Muscle atrophy [None]

NARRATIVE: CASE EVENT DATE: 20240306
